FAERS Safety Report 9705725 (Version 1)
Quarter: 2013Q4

REPORT INFORMATION
  Report Type: Spontaneous
  Country: US (occurrence: US)
  Receive Date: 20131122
  Receipt Date: 20131122
  Transmission Date: 20140711
  Serious: No
  Sender: FDA-Public Use
  Company Number: US-GILEAD-2008-0017780

PATIENT
  Age: 41 Year
  Sex: Female

DRUGS (10)
  1. LETAIRIS [Suspect]
     Indication: PULMONARY ARTERIAL HYPERTENSION
     Route: 048
     Dates: start: 20080717
  2. METOPROLOL [Concomitant]
     Route: 048
  3. PROCARDIA XL [Concomitant]
     Route: 048
  4. COUMADIN [Concomitant]
     Route: 048
  5. COUMADIN [Concomitant]
     Route: 048
  6. LANTUS [Concomitant]
  7. INSULIN REG [Concomitant]
  8. TRIAM/HCTZ [Concomitant]
     Route: 048
  9. SYNTHROID [Concomitant]
     Route: 048
  10. K-DUR [Concomitant]
     Route: 048

REACTIONS (1)
  - Oedema peripheral [None]
